FAERS Safety Report 5399600-4 (Version None)
Quarter: 2007Q3

REPORT INFORMATION
  Report Type: 
  Country: None (occurrence: None)
  Receive Date: 20070727
  Receipt Date: 20070724
  Transmission Date: 20080115
  Serious: Yes (Hospitalization)
  Sender: FDA-Public Use
  Company Number: AU-ROXANE LABORATORIES, INC-2007-BP-18056RO

PATIENT
  Age: 15 Year
  Sex: Male
  Weight: 69 kg

DRUGS (10)
  1. MIDAZOLAM HCL [Suspect]
     Indication: ANAESTHESIA
     Dosage: 2.5 MG X 1 DOSE
  2. MORPHINE [Suspect]
     Indication: ANALGESIA
     Dosage: 20 MG IN DIVIDED DOSES
  3. FENTANYL [Suspect]
     Indication: ANAESTHESIA
     Dosage: 100 MCG X 1 DOSE
  4. PROPOFOL [Suspect]
     Indication: ANAESTHESIA
     Dosage: 150 MG X 1 DOSE
  5. PARECOXIB SODIUM [Suspect]
     Indication: ANALGESIA
     Dosage: 40 MG X 1 DOSE
     Route: 042
  6. PARACETAMOL [Suspect]
     Indication: ANALGESIA
     Dosage: 1 GM X 1 DOSE
     Route: 042
  7. NITROUS OXIDE [Suspect]
     Indication: ANAESTHESIA
     Route: 055
  8. SEVOFLURANE [Suspect]
     Indication: ANAESTHESIA
     Route: 055
  9. SERATIDE [Concomitant]
     Indication: ASTHMA
     Route: 055
  10. SALBUTAMOL [Concomitant]
     Indication: ASTHMA
     Route: 055

REACTIONS (5)
  - DIZZINESS [None]
  - HEMIPLEGIA [None]
  - MIGRAINE WITH AURA [None]
  - SENSORY LOSS [None]
  - VISION BLURRED [None]
